FAERS Safety Report 20419623 (Version 11)
Quarter: 2022Q2

REPORT INFORMATION
  Report Type: Spontaneous
  Country: CA (occurrence: CA)
  Receive Date: 20220203
  Receipt Date: 20220623
  Transmission Date: 20220720
  Serious: Yes (Other)
  Sender: FDA-Public Use
  Company Number: CA-CELLTRION INC.-2020CA028048

PATIENT

DRUGS (13)
  1. INFLECTRA [Suspect]
     Active Substance: INFLIXIMAB-DYYB
     Indication: Ankylosing spondylitis
     Dosage: 5 MG/KG 0, 2, 6 THEN EVERY 8 WEEKS)
     Route: 042
     Dates: start: 20200831
  2. INFLECTRA [Suspect]
     Active Substance: INFLIXIMAB-DYYB
     Dosage: 5 MG/KG 0, 2, 6 THEN EVERY 8 WEEKS)
     Route: 042
     Dates: start: 20200831
  3. INFLECTRA [Suspect]
     Active Substance: INFLIXIMAB-DYYB
     Dosage: 5 MG/KG 0, 2, 6 THEN EVERY 8 WEEKS)
     Dates: start: 20200914, end: 20210202
  4. INFLECTRA [Suspect]
     Active Substance: INFLIXIMAB-DYYB
     Dosage: 5 MG/KG 0, 2, 6 THEN EVERY 8 WEEKS)
     Dates: start: 20210319
  5. INFLECTRA [Suspect]
     Active Substance: INFLIXIMAB-DYYB
     Dosage: 5 MG/KG, EVERY 6 WEEK
     Dates: start: 20210319
  6. INFLECTRA [Suspect]
     Active Substance: INFLIXIMAB-DYYB
     Dosage: 5 MG/KG 0, 2, 6 THEN EVERY 8 WEEKS)
     Dates: start: 20210511
  7. INFLECTRA [Suspect]
     Active Substance: INFLIXIMAB-DYYB
     Dosage: 5 MG/KG 0, 2, 6 THEN EVERY 8 WEEKS)
     Dates: start: 20210621
  8. INFLECTRA [Suspect]
     Active Substance: INFLIXIMAB-DYYB
     Dosage: 487 MG (5 MG/KG) 0, 2, 6 THEN EVERY 8 WEEKS)
     Route: 042
     Dates: start: 20220124
  9. INFLECTRA [Suspect]
     Active Substance: INFLIXIMAB-DYYB
     Dosage: 487 MG (5 MG/KG) 0, 2, 6 THEN EVERY 8 WEEKS)
     Route: 042
     Dates: start: 20220124
  10. INFLECTRA [Suspect]
     Active Substance: INFLIXIMAB-DYYB
     Dosage: 487 MG (5 MG/KG) 0, 2, 6 THEN EVERY 8 WEEKS)
     Route: 042
     Dates: start: 20220307
  11. INFLECTRA [Suspect]
     Active Substance: INFLIXIMAB-DYYB
     Dosage: 487 MG (5 MG/KG) 0, 2, 6 THEN EVERY 8 WEEKS)
     Route: 042
     Dates: start: 20220307
  12. INFLECTRA [Suspect]
     Active Substance: INFLIXIMAB-DYYB
     Dosage: 5 MG/KG EVERY 4 WEEK
     Route: 042
     Dates: start: 20220414
  13. INFLECTRA [Suspect]
     Active Substance: INFLIXIMAB-DYYB
     Dosage: 5 MG/KG EVERY 4 WEEK
     Route: 042
     Dates: start: 20220517

REACTIONS (22)
  - Back pain [Recovering/Resolving]
  - Spinal pain [Not Recovered/Not Resolved]
  - Ankylosing spondylitis [Not Recovered/Not Resolved]
  - Therapeutic response shortened [Unknown]
  - Inappropriate schedule of product administration [Unknown]
  - Off label use [Unknown]
  - Incorrect dose administered [Unknown]
  - Blood pressure increased [Unknown]
  - COVID-19 [Recovering/Resolving]
  - Musculoskeletal stiffness [Recovering/Resolving]
  - Weight increased [Unknown]
  - Impaired quality of life [Unknown]
  - Insomnia [Unknown]
  - Pain in extremity [Recovering/Resolving]
  - Malaise [Unknown]
  - COVID-19 [Recovering/Resolving]
  - Feeling abnormal [Unknown]
  - Neck pain [Unknown]
  - Pain in extremity [Unknown]
  - Pain [Unknown]
  - Joint stiffness [Recovering/Resolving]
  - Pain in extremity [Not Recovered/Not Resolved]

NARRATIVE: CASE EVENT DATE: 20200914
